FAERS Safety Report 22170542 (Version 1)
Quarter: 2023Q2

REPORT INFORMATION
  Report Type: Report from Study
  Country: KR (occurrence: KR)
  Receive Date: 20230404
  Receipt Date: 20230404
  Transmission Date: 20230722
  Serious: Yes (Hospitalization, Other)
  Sender: FDA-Public Use
  Company Number: KR-ABBVIE-4714810

PATIENT
  Age: 64 Year
  Sex: Male

DRUGS (4)
  1. RINVOQ [Suspect]
     Active Substance: UPADACITINIB
     Indication: Rheumatoid arthritis
     Dosage: FORM STRENGTH: 15 MILLIGRAM?UNABLE TO CONTACT SUBJECT
     Route: 048
     Dates: start: 20211004, end: 20220104
  2. R-A TAB 20mg [Concomitant]
     Indication: Rheumatoid arthritis
     Dates: start: 20210101
  3. HALOXIN TAB 200mg [Concomitant]
     Indication: Rheumatoid arthritis
     Dates: start: 20210101
  4. Rheumatrex Folex (Methotrexate) [Concomitant]
     Indication: Rheumatoid arthritis
     Dates: start: 20210101

REACTIONS (1)
  - Interstitial lung disease [Unknown]

NARRATIVE: CASE EVENT DATE: 20220104
